FAERS Safety Report 5257315-7 (Version None)
Quarter: 2007Q1

REPORT INFORMATION
  Report Type: 
  Country: None (occurrence: None)
  Receive Date: 20070302
  Receipt Date: 20061026
  Transmission Date: 20070707
  Serious: Yes (Death, Hospitalization)
  Sender: FDA-Public Use
  Company Number: DSA_29444_2007

PATIENT
  Age: 80 Year
  Sex: Male

DRUGS (14)
  1. CARDIZEM [Suspect]
     Indication: HYPERTENSION
     Dosage: DF
  2. STUDY DRUG (BIBR1048) [Suspect]
     Indication: ATRIAL FIBRILLATION
     Dosage: DF
     Dates: start: 20041011, end: 20060923
  3. STUDY DRUG (BIBR1048) [Suspect]
     Indication: ATRIAL FIBRILLATION
     Dosage: DF ONCE
     Dates: start: 20060925, end: 20060925
  4. STUDY DRUG (BIBR1048) [Suspect]
     Indication: ATRIAL FIBRILLATION
     Dosage: DF ONCE
     Dates: start: 20060926, end: 20060926
  5. STUDY DRUG (BIBR1048) [Suspect]
     Indication: ATRIAL FIBRILLATION
     Dosage: DF
     Dates: start: 20060927, end: 20060927
  6. NORVASC [Suspect]
     Indication: HYPERTENSION
     Dosage: DF
  7. DIOVAN [Suspect]
     Indication: HYPERTENSION
     Dosage: DF
  8. POTASSIUM ACETATE [Suspect]
     Dosage: DF
  9. GLUCOPHAGE [Concomitant]
  10. PREDNISONE [Concomitant]
  11. ATENOLOL [Concomitant]
  12. LIPITOR [Concomitant]
  13. ALEVE [Concomitant]
  14. TORSEMIDE [Concomitant]

REACTIONS (14)
  - ABDOMINAL DISTENSION [None]
  - BRADYCARDIA [None]
  - CARDIO-RESPIRATORY ARREST [None]
  - CHRONIC OBSTRUCTIVE PULMONARY DISEASE [None]
  - CONDITION AGGRAVATED [None]
  - COUGH [None]
  - DIABETIC GASTROPARESIS [None]
  - EROSIVE OESOPHAGITIS [None]
  - GALLBLADDER ENLARGEMENT [None]
  - GASTROINTESTINAL ULCER HAEMORRHAGE [None]
  - HYPERKALAEMIA [None]
  - HYPOTENSION [None]
  - RENAL FAILURE ACUTE [None]
  - UPPER GASTROINTESTINAL HAEMORRHAGE [None]
